FAERS Safety Report 16144556 (Version 1)
Quarter: 2019Q1

REPORT INFORMATION
  Report Type: Spontaneous
  Country: US (occurrence: US)
  Receive Date: 20190226
  Receipt Date: 20190226
  Transmission Date: 20190418
  Serious: Yes (Life-Threatening)
  Sender: FDA-Public Use
  Company Number: None

PATIENT
  Age: 69 Year
  Sex: Female
  Weight: 84.37 kg

DRUGS (8)
  1. HYDROCODIENE [Concomitant]
  2. MILK THRISTLE [Concomitant]
  3. FLAX SEED [Concomitant]
     Active Substance: FLAX SEED
  4. COATED BABY ASPIRN [Concomitant]
  5. AMLODIPINE [Concomitant]
     Active Substance: AMLODIPINE BESYLATE
  6. TRAMADOL. [Concomitant]
     Active Substance: TRAMADOL
  7. ABILIFY [Suspect]
     Active Substance: ARIPIPRAZOLE
     Indication: MENTAL DISORDER
     Dosage: ?          QUANTITY:2.5 MG MILLIGRAM(S);?
     Dates: start: 20180901, end: 20180901
  8. NEXIUM [Concomitant]
     Active Substance: ESOMEPRAZOLE MAGNESIUM

REACTIONS (9)
  - Sleep disorder [None]
  - Visual impairment [None]
  - Eye complication associated with device [None]
  - Rash erythematous [None]
  - Fall [None]
  - Cerebrovascular accident [None]
  - Red blood cell count abnormal [None]
  - Foot fracture [None]
  - Memory impairment [None]

NARRATIVE: CASE EVENT DATE: 20180901
